FAERS Safety Report 9676154 (Version 2)
Quarter: 2013Q4

REPORT INFORMATION
  Report Type: Report from Study
  Country: CA (occurrence: CA)
  Receive Date: 20131107
  Receipt Date: 20131107
  Transmission Date: 20140711
  Serious: Yes (Hospitalization)
  Sender: FDA-Public Use
  Company Number: CA-ABBVIE-13P-028-1061957-00

PATIENT
  Age: 50 Year
  Sex: Female
  Weight: 51.76 kg

DRUGS (2)
  1. HUMIRA [Suspect]
     Indication: PSORIASIS
     Dosage: INDUCTION
     Route: 058
     Dates: start: 201102, end: 201102
  2. HUMIRA [Suspect]
     Route: 058
     Dates: start: 20120205

REACTIONS (1)
  - Crohn^s disease [Not Recovered/Not Resolved]
